FAERS Safety Report 4353969-8 (Version None)
Quarter: 2004Q2

REPORT INFORMATION
  Report Type: 
  Country: None (occurrence: None)
  Receive Date: 20040503
  Receipt Date: 20040419
  Transmission Date: 20050107
  Serious: Yes (Hospitalization)
  Sender: FDA-Public Use
  Company Number: 2004PL000028

PATIENT
  Age: 77 Year
  Sex: Male

DRUGS (4)
  1. AZATHIOPRINE [Suspect]
     Indication: POLYMYALGIA RHEUMATICA
     Dosage: ORAL
     Route: 048
  2. GLICLAZIDE [Concomitant]
  3. PREDNISOLONE [Concomitant]
  4. ASPIRIN [Concomitant]

REACTIONS (15)
  - BLOOD CREATININE INCREASED [None]
  - CONFUSIONAL STATE [None]
  - CYANOSIS [None]
  - DRUG HYPERSENSITIVITY [None]
  - DYSPNOEA [None]
  - HEPATITIS [None]
  - HYPOTENSION [None]
  - HYPOXIA [None]
  - NEPHRITIS [None]
  - NEUTROPENIA [None]
  - NORMOCHROMIC NORMOCYTIC ANAEMIA [None]
  - OLIGURIA [None]
  - PNEUMONITIS [None]
  - PYREXIA [None]
  - RASH MACULO-PAPULAR [None]
